FAERS Safety Report 24647335 (Version 1)
Quarter: 2024Q4

REPORT INFORMATION
  Report Type: Spontaneous
  Country: CN (occurrence: CN)
  Receive Date: 20241121
  Receipt Date: 20241121
  Transmission Date: 20250115
  Serious: Yes (Hospitalization)
  Sender: ELI LILLY AND COMPANY
  Company Number: CN-Merck Healthcare KGaA-2024060466

PATIENT
  Age: 70 Year
  Sex: Female
  Weight: 50 kg

DRUGS (3)
  1. ERBITUX [Suspect]
     Active Substance: CETUXIMAB
     Indication: Lip and/or oral cavity cancer stage 0
     Dosage: 600 MG, OTHER (D1)
     Route: 041
     Dates: start: 20241104, end: 20241105
  2. CAPECITABINE [Concomitant]
     Active Substance: CAPECITABINE
     Indication: Lip and/or oral cavity cancer stage 0
     Dosage: 1.5 G, OTHER (D1-14 )
     Route: 065
     Dates: start: 20241104
  3. CISPLATIN [Concomitant]
     Active Substance: CISPLATIN
     Indication: Lip and/or oral cavity cancer stage 0
     Dosage: 30 MG, OTHER (D1-3)
     Dates: start: 20241104

REACTIONS (1)
  - Dermatitis allergic [Recovering/Resolving]

NARRATIVE: CASE EVENT DATE: 20241105
